FAERS Safety Report 21754574 (Version 1)
Quarter: 2022Q4

REPORT INFORMATION
  Report Type: Spontaneous
  Country: US (occurrence: None)
  Receive Date: 20221219
  Receipt Date: 20221219
  Transmission Date: 20230113
  Serious: Yes (Hospitalization, Disabling)
  Sender: FDA-Public Use
  Company Number: None

PATIENT
  Age: 79 Year
  Sex: Female
  Weight: 73.94 kg

DRUGS (12)
  1. KEYTRUDA [Suspect]
     Active Substance: PEMBROLIZUMAB
     Indication: Bronchial carcinoma
     Dosage: OTHER FREQUENCY : EVERY3WEEKS;?
     Route: 048
     Dates: start: 20221110
  2. CALCIUM [Concomitant]
     Active Substance: CALCIUM
  3. ASPIRIN [Concomitant]
     Active Substance: ASPIRIN
  4. DRONABINOL [Concomitant]
     Active Substance: DRONABINOL
  5. FLEXERIL [Concomitant]
     Active Substance: CYCLOBENZAPRINE HYDROCHLORIDE
  6. FUROSDEMIDE [Concomitant]
  7. LEVOTHYROXINE [Concomitant]
     Active Substance: LEVOTHYROXINE
  8. MULTIVITAMIN ADULTS TABLET [Concomitant]
  9. PRESERVISION EYE VITAMINS [Concomitant]
  10. TRAZODONE [Concomitant]
  11. TYLENOL [Concomitant]
     Active Substance: ACETAMINOPHEN
  12. ZYRTEC [Concomitant]
     Active Substance: CETIRIZINE HYDROCHLORIDE

REACTIONS (4)
  - Nausea [None]
  - Diarrhoea [None]
  - Restlessness [None]
  - Decreased appetite [None]

NARRATIVE: CASE EVENT DATE: 20221206
